FAERS Safety Report 20421493 (Version 1)
Quarter: 2022Q1

REPORT INFORMATION
  Report Type: Spontaneous
  Country: US (occurrence: None)
  Receive Date: 20220203
  Receipt Date: 20220203
  Transmission Date: 20220423
  Serious: Yes (Other)
  Sender: FDA-Public Use
  Company Number: None

PATIENT
  Age: 54 Year
  Sex: Female

DRUGS (1)
  1. ICATIBANT [Suspect]
     Active Substance: ICATIBANT ACETATE
     Dosage: OTHER FREQUENCY : PRN;?
     Route: 058
     Dates: start: 201802

REACTIONS (1)
  - Breast cancer [None]

NARRATIVE: CASE EVENT DATE: 20220203
